FAERS Safety Report 25602825 (Version 3)
Quarter: 2025Q3

REPORT INFORMATION
  Report Type: Spontaneous
  Country: CR (occurrence: CR)
  Receive Date: 20250724
  Receipt Date: 20250919
  Transmission Date: 20251020
  Serious: No
  Sender: PFIZER
  Company Number: CR-PFIZER INC-PV202500088169

PATIENT
  Age: 14 Year
  Sex: Male

DRUGS (1)
  1. GENOTROPIN [Suspect]
     Active Substance: SOMATROPIN
     Dosage: 2.6 MG, 1X/DAY
     Dates: start: 202505, end: 20250717

REACTIONS (3)
  - Device leakage [Unknown]
  - Device mechanical issue [Unknown]
  - Drug dose omission by device [Unknown]

NARRATIVE: CASE EVENT DATE: 20250717
